FAERS Safety Report 16655997 (Version 1)
Quarter: 2019Q3

REPORT INFORMATION
  Report Type: Spontaneous
  Country: CA (occurrence: CA)
  Receive Date: 20190801
  Receipt Date: 20190801
  Transmission Date: 20191004
  Serious: Yes (Hospitalization, Other)
  Sender: FDA-Public Use
  Company Number: CA-MYLANLABS-2019M1070808

PATIENT
  Age: 7 Decade
  Sex: Female

DRUGS (11)
  1. TAMOXIFEN [Concomitant]
     Active Substance: TAMOXIFEN
     Indication: OESTROGEN RECEPTOR POSITIVE BREAST CANCER
     Dosage: UNK
     Route: 065
  2. EPLERENONE. [Suspect]
     Active Substance: EPLERENONE
     Indication: EVIDENCE BASED TREATMENT
     Dosage: 25 MILLIGRAM, QD
     Route: 065
  3. EPIRUBICIN [Suspect]
     Active Substance: EPIRUBICIN
     Indication: OESTROGEN RECEPTOR POSITIVE BREAST CANCER
     Dosage: UNK
     Route: 065
  4. ENALAPRIL [Suspect]
     Active Substance: ENALAPRIL
     Indication: EVIDENCE BASED TREATMENT
     Dosage: INCREASED TO 5 MG TWICE DAILY AND THEN WITHDRAWN
     Route: 065
  5. FUROSEMIDE. [Suspect]
     Active Substance: FUROSEMIDE
     Indication: EVIDENCE BASED TREATMENT
     Dosage: 20 MILLIGRAM
     Route: 065
  6. 5-FLUOROURACIL                     /00098801/ [Concomitant]
     Active Substance: FLUOROURACIL
     Indication: OESTROGEN RECEPTOR POSITIVE BREAST CANCER
     Route: 065
  7. SPIRONOLACTONE. [Suspect]
     Active Substance: SPIRONOLACTONE
     Indication: EVIDENCE BASED TREATMENT
     Dosage: 25 MILLIGRAM, QD
     Route: 065
  8. CARVEDILOL. [Suspect]
     Active Substance: CARVEDILOL
     Indication: EVIDENCE BASED TREATMENT
     Dosage: FURTHER CONTINUED AT 12.5MG
     Route: 065
  9. CARVEDILOL. [Suspect]
     Active Substance: CARVEDILOL
     Dosage: 25 MILLIGRAM
     Route: 065
  10. CYCLOPHOSPHAMIDE. [Concomitant]
     Active Substance: CYCLOPHOSPHAMIDE
     Indication: OESTROGEN RECEPTOR POSITIVE BREAST CANCER
     Dosage: UNK
     Route: 065
  11. LETROZOLE. [Concomitant]
     Active Substance: LETROZOLE
     Indication: OESTROGEN RECEPTOR POSITIVE BREAST CANCER
     Route: 065

REACTIONS (5)
  - Cardiomyopathy [Recovering/Resolving]
  - Drug ineffective [Unknown]
  - Cardiac failure congestive [Unknown]
  - Hypovolaemia [Unknown]
  - Hypotension [Unknown]

NARRATIVE: CASE EVENT DATE: 2008
